FAERS Safety Report 14372643 (Version 2)
Quarter: 2018Q1

REPORT INFORMATION
  Report Type: Report from Study
  Country: US (occurrence: US)
  Receive Date: 20180110
  Receipt Date: 20180315
  Transmission Date: 20180509
  Serious: Yes (Other)
  Sender: FDA-Public Use
  Company Number: US-JNJFOC-20171112731

PATIENT
  Age: 70 Year
  Sex: Female

DRUGS (3)
  1. LIVALO [Concomitant]
     Active Substance: PITAVASTATIN CALCIUM
  2. SYNTHROID [Concomitant]
     Active Substance: LEVOTHYROXINE SODIUM
  3. IMBRUVICA [Suspect]
     Active Substance: IBRUTINIB
     Indication: CHRONIC LYMPHOCYTIC LEUKAEMIA
     Route: 048
     Dates: start: 20171030

REACTIONS (7)
  - Eye haemorrhage [Not Recovered/Not Resolved]
  - Arthralgia [Recovering/Resolving]
  - Back pain [Unknown]
  - Visual impairment [Recovering/Resolving]
  - Myalgia [Recovering/Resolving]
  - Joint swelling [Recovered/Resolved]
  - Rash papular [Unknown]

NARRATIVE: CASE EVENT DATE: 20171108
